FAERS Safety Report 24250890 (Version 1)
Quarter: 2024Q3

REPORT INFORMATION
  Report Type: Spontaneous
  Country: US (occurrence: None)
  Receive Date: 20240825
  Receipt Date: 20240825
  Transmission Date: 20241017
  Serious: Yes (Life-Threatening, Hospitalization)
  Sender: Public
  Company Number: None

PATIENT
  Age: 82 Year
  Sex: Female
  Weight: 63 kg

DRUGS (1)
  1. PAXLOVID [Suspect]
     Active Substance: NIRMATRELVIR\RITONAVIR
     Indication: COVID-19
     Dates: start: 20240810, end: 20240813

REACTIONS (10)
  - Nausea [None]
  - Drug ineffective [None]
  - Hypophagia [None]
  - Confusional state [None]
  - Cognitive disorder [None]
  - Loss of personal independence in daily activities [None]
  - Blood sodium decreased [None]
  - Seizure [None]
  - Asthenia [None]
  - Memory impairment [None]

NARRATIVE: CASE EVENT DATE: 20240814
